FAERS Safety Report 5844539-0 (Version None)
Quarter: 2008Q3

REPORT INFORMATION
  Report Type: 
  Country: None (occurrence: None)
  Receive Date: 20080814
  Receipt Date: 20080808
  Transmission Date: 20090109
  Serious: Yes (Death)
  Sender: FDA-Public Use
  Company Number: PHHO2001ES09249

PATIENT
  Sex: Male
  Weight: 70 kg

DRUGS (1)
  1. EXELON EXELON+CAP [Suspect]
     Indication: DEMENTIA ALZHEIMER'S TYPE
     Dosage: UNSPECIFIED
     Route: 048
     Dates: start: 20010725

REACTIONS (1)
  - ACUTE MYOCARDIAL INFARCTION [None]
